FAERS Safety Report 5223747-6 (Version None)
Quarter: 2007Q1

REPORT INFORMATION
  Report Type: 
  Country: None (occurrence: None)
  Receive Date: 20070130
  Receipt Date: 20070123
  Transmission Date: 20070707
  Serious: Yes (Other)
  Sender: FDA-Public Use
  Company Number: 2007UW01402

PATIENT
  Age: 70 Year
  Sex: Female

DRUGS (3)
  1. TOPROL-XL [Suspect]
     Route: 048
     Dates: start: 20020101
  2. HYDROCHLOROTHIAZIDE [Concomitant]
  3. LIPITOR [Concomitant]

REACTIONS (2)
  - ARTERIAL STENOSIS [None]
  - SUBCLAVIAN ARTERY STENOSIS [None]
